FAERS Safety Report 6200855-4 (Version None)
Quarter: 2009Q2

REPORT INFORMATION
  Report Type: 
  Country: None (occurrence: None)
  Receive Date: 20090523
  Receipt Date: 20081009
  Transmission Date: 20091009
  Serious: Yes (Hospitalization)
  Sender: FDA-Public Use
  Company Number: US-ALEXION-A200800148

PATIENT
  Sex: Female
  Weight: 81.633 kg

DRUGS (20)
  1. SOLIRIS [Suspect]
     Indication: PAROXYSMAL NOCTURNAL HAEMOGLOBINURIA
     Dosage: 600 MG, SINGLE
     Route: 042
     Dates: start: 20070712, end: 20070712
  2. SOLIRIS [Suspect]
     Dosage: 600 MG, SINGLE
     Route: 042
     Dates: start: 20070719, end: 20070719
  3. SOLIRIS [Suspect]
     Dosage: 600 MG, SINGLE
     Route: 042
     Dates: start: 20070726, end: 20070726
  4. SOLIRIS [Suspect]
     Dosage: 600 MG, SINGLE
     Route: 042
     Dates: start: 20070802, end: 20070802
  5. SOLIRIS [Suspect]
     Dosage: 600 MG, SINGLE
     Route: 042
     Dates: start: 20070809, end: 20070809
  6. SOLIRIS [Suspect]
     Dosage: 900 MG, SINGLE
     Route: 042
     Dates: start: 20080511, end: 20080511
  7. SOLIRIS [Suspect]
     Dosage: 900 MG, SINGLE
     Route: 042
     Dates: start: 20080515, end: 20080515
  8. SOLIRIS [Suspect]
     Dosage: 900 MG, SINGLE
     Route: 042
     Dates: start: 20080529, end: 20080529
  9. SOLIRIS [Suspect]
     Dosage: 900 MG, SINGLE
     Route: 042
     Dates: start: 20080612, end: 20080612
  10. SOLIRIS [Suspect]
     Dosage: 900 MG, SINGLE
     Route: 042
     Dates: start: 20080710, end: 20080710
  11. SOLIRIS [Suspect]
     Dosage: 900 MG, SINGLE
     Route: 042
     Dates: start: 20080724, end: 20080724
  12. SOLIRIS [Suspect]
     Dosage: 900 MG, SINGLE
     Route: 042
     Dates: start: 20080807, end: 20080807
  13. SOLIRIS [Suspect]
     Dosage: 900 MG, SINGLE
     Route: 042
     Dates: start: 20080821, end: 20080821
  14. SOLIRIS [Suspect]
     Dosage: 900 MG, SINGLE
     Route: 042
     Dates: start: 20080904, end: 20080904
  15. SOLIRIS [Suspect]
     Dosage: EVERY 2 WEEKS
  16. PROCRIT /00909301/ [Concomitant]
     Indication: HEPATITIS C
  17. ZOLOFT [Concomitant]
     Dosage: 100 MG, UNK
  18. ATIVAN [Concomitant]
     Dosage: UNK, PRN
  19. FOLIC ACID [Concomitant]
  20. PRILOSEC [Concomitant]

REACTIONS (5)
  - BRONCHITIS [None]
  - GASTRIC POLYPS [None]
  - GASTROOESOPHAGEAL REFLUX DISEASE [None]
  - LIVER FUNCTION TEST ABNORMAL [None]
  - SPLENOMEGALY [None]
